FAERS Safety Report 10266596 (Version 2)
Quarter: 2014Q3

REPORT INFORMATION
  Report Type: Report from Study
  Country: AU (occurrence: AU)
  Receive Date: 20140629
  Receipt Date: 20140709
  Transmission Date: 20150326
  Serious: Yes (Hospitalization)
  Sender: FDA-Public Use
  Company Number: PHHY2014AU079624

PATIENT
  Sex: Male

DRUGS (2)
  1. CLOZARIL [Suspect]
     Active Substance: CLOZAPINE
     Dosage: 200 MG, DAILY
  2. CLOZARIL [Suspect]
     Active Substance: CLOZAPINE
     Dosage: 650 MG, DAILY

REACTIONS (1)
  - Psychotic disorder [Unknown]
